FAERS Safety Report 11122567 (Version 1)
Quarter: 2015Q2

REPORT INFORMATION
  Report Type: Spontaneous
  Country: US (occurrence: None)
  Receive Date: 20150518
  Receipt Date: 20150518
  Transmission Date: 20150821
  Serious: No
  Sender: FDA-Public Use
  Company Number: None

PATIENT
  Age: 28 Year
  Sex: Female
  Weight: 104.33 kg

DRUGS (2)
  1. DEPO-PROVERA [Suspect]
     Active Substance: MEDROXYPROGESTERONE ACETATE
     Dosage: EVERY 3 MONTHS  INTO THE MUSCLE
     Route: 030
  2. ONE-A-DAY VITAMINS [Concomitant]

REACTIONS (7)
  - Menorrhagia [None]
  - Secretion discharge [None]
  - Headache [None]
  - Weight increased [None]
  - Mood swings [None]
  - Decreased appetite [None]
  - Alopecia [None]

NARRATIVE: CASE EVENT DATE: 20150403
